FAERS Safety Report 6287926-1 (Version None)
Quarter: 2009Q3

REPORT INFORMATION
  Report Type: 
  Country: None (occurrence: None)
  Receive Date: 20090729
  Receipt Date: 20090724
  Transmission Date: 20100115
  Serious: Yes (Hospitalization)
  Sender: FDA-Public Use
  Company Number: LU-BRISTOL-MYERS SQUIBB COMPANY-14688675

PATIENT
  Age: 5 Decade
  Sex: Female

DRUGS (11)
  1. ORENCIA [Suspect]
     Indication: POLYARTHRITIS
     Dosage: TREATED(ALMOST 1 YEAR),INTERRUPTED DURING APPROX.3 MONTHS. (25JUN09) THE INFUSION STARTED AGAIN
     Route: 042
     Dates: start: 20081218
  2. ORENCIA [Suspect]
     Indication: RHEUMATOID ARTHRITIS
     Dosage: TREATED(ALMOST 1 YEAR),INTERRUPTED DURING APPROX.3 MONTHS. (25JUN09) THE INFUSION STARTED AGAIN
     Route: 042
     Dates: start: 20081218
  3. SOLU-MEDROL [Suspect]
     Indication: POLYARTHRITIS
     Dosage: 100 MG FROM 25-JUN-09
  4. BISOPROLOL FUMARATE [Concomitant]
     Dosage: 1 DF= 2,5 UNITS NOS;
  5. PANTOZOL [Concomitant]
     Dosage: 1 DF= 20 UNITS NOS
  6. CORTANCYL [Concomitant]
  7. ACTONEL [Concomitant]
  8. TENORMIN [Concomitant]
     Dosage: 1 DF= 50 UNITS NOS
  9. CALCICHEW [Concomitant]
  10. ASPIRIN [Concomitant]
  11. REMERGON [Concomitant]

REACTIONS (3)
  - CEREBROVASCULAR ACCIDENT [None]
  - CHEST PAIN [None]
  - MYOCARDIAL INFARCTION [None]
